FAERS Safety Report 8225113-8 (Version None)
Quarter: 2012Q1

REPORT INFORMATION
  Report Type: 
  Country: None (occurrence: None)
  Receive Date: 20120321
  Receipt Date: 20120313
  Transmission Date: 20120608
  Serious: Yes (Other)
  Sender: FDA-Public Use
  Company Number: CA-JNJFOC-20120110666

PATIENT
  Sex: Female
  Weight: 85 kg

DRUGS (2)
  1. REMICADE [Suspect]
     Indication: RETINAL VASCULITIS
     Route: 042
     Dates: start: 20100604
  2. REMICADE [Suspect]
     Route: 042
     Dates: start: 20110101

REACTIONS (1)
  - CARPAL TUNNEL SYNDROME [None]
